FAERS Safety Report 8401739-3 (Version None)
Quarter: 2012Q2

REPORT INFORMATION
  Report Type: 
  Country: None (occurrence: None)
  Receive Date: 20120601
  Receipt Date: 20120522
  Transmission Date: 20120825
  Serious: Yes (Hospitalization)
  Sender: FDA-Public Use
  Company Number: DK-JNJFOC-20120520537

PATIENT
  Sex: Male
  Weight: 92 kg

DRUGS (10)
  1. BETNOVAT [Concomitant]
     Route: 065
  2. CALCIUM AND VITAMIN D3 [Concomitant]
     Route: 065
  3. MORPHINE SULFATE [Concomitant]
     Route: 065
  4. MORFIN (MORPHINE) [Concomitant]
     Route: 065
  5. ACETAMINOPHEN [Concomitant]
     Route: 065
  6. SPIRONOLACTONE [Concomitant]
     Route: 065
  7. SIMVASTATIN [Concomitant]
     Route: 065
  8. STELARA [Suspect]
     Indication: PSORIASIS
     Route: 058
     Dates: start: 20110614
  9. CISORDINOL [Concomitant]
     Route: 065
  10. SPIROCORT [Concomitant]
     Route: 065

REACTIONS (4)
  - BLOOD ALKALINE PHOSPHATASE INCREASED [None]
  - ERYSIPELAS [None]
  - INTERNATIONAL NORMALISED RATIO INCREASED [None]
  - BLOOD BILIRUBIN INCREASED [None]
